FAERS Safety Report 11321859 (Version 1)
Quarter: 2015Q3

REPORT INFORMATION
  Report Type: Spontaneous
  Country: US (occurrence: US)
  Receive Date: 20150729
  Receipt Date: 20150729
  Transmission Date: 20151125
  Serious: No
  Sender: FDA-Public Use
  Company Number: US-MYLANLABS-2015M1012224

PATIENT
  Age: 88 Year
  Sex: Female

DRUGS (4)
  1. NIFEDIPINE EXTENDED-RELEASE TABLETS, USP [Suspect]
     Active Substance: NIFEDIPINE
     Indication: HYPERTENSION
     Dosage: 90 MG, PM
     Route: 048
     Dates: start: 201501, end: 201504
  2. ZINC                               /00156502/ [Concomitant]
     Indication: ZINC DEFICIENCY
     Dosage: UNK, QOD
     Dates: start: 201503
  3. METOPROLOL TARTRATE TABLETS USP [Suspect]
     Active Substance: METOPROLOL TARTRATE
     Indication: HYPERTENSION
     Dosage: 100 MG, BID, AM AND PM
     Route: 048
     Dates: start: 201501
  4. CALCIUM ACETATE NEPHRO [Suspect]
     Active Substance: CALCIUM ACETATE
     Dosage: UNK, PRN

REACTIONS (3)
  - Zinc deficiency [Recovering/Resolving]
  - Eating disorder [Not Recovered/Not Resolved]
  - Dysgeusia [Not Recovered/Not Resolved]

NARRATIVE: CASE EVENT DATE: 2015
